FAERS Safety Report 21316070 (Version 1)
Quarter: 2022Q3

REPORT INFORMATION
  Report Type: Spontaneous
  Country: US (occurrence: US)
  Receive Date: 20220910
  Receipt Date: 20220910
  Transmission Date: 20221026
  Serious: No
  Sender: FDA-Public Use
  Company Number: US-GSKCCFUS-Case-01489263_AE-84921

PATIENT
  Sex: Female

DRUGS (1)
  1. BENLYSTA [Suspect]
     Active Substance: BELIMUMAB
     Indication: Product used for unknown indication
     Dosage: 1 CI, WE
     Dates: start: 20220801

REACTIONS (3)
  - Feeling hot [Not Recovered/Not Resolved]
  - Menopause [Unknown]
  - Pruritus [Not Recovered/Not Resolved]
